FAERS Safety Report 11609085 (Version 3)
Quarter: 2015Q4

REPORT INFORMATION
  Report Type: Spontaneous
  Country: JP (occurrence: JP)
  Receive Date: 20151007
  Receipt Date: 20151026
  Transmission Date: 20160304
  Serious: Yes (Other)
  Sender: FDA-Public Use
  Company Number: JP-JNJFOC-20151002615

PATIENT
  Age: 62 Year
  Sex: Male

DRUGS (2)
  1. REMICADE [Suspect]
     Active Substance: INFLIXIMAB
     Indication: BEHCET^S SYNDROME
     Route: 042
     Dates: start: 201303
  2. IMURAN [Suspect]
     Active Substance: AZATHIOPRINE
     Indication: BEHCET^S SYNDROME
     Route: 065
     Dates: start: 201301

REACTIONS (1)
  - Bowen^s disease [Recovered/Resolved]

NARRATIVE: CASE EVENT DATE: 201409
